FAERS Safety Report 24708670 (Version 1)
Quarter: 2024Q4

REPORT INFORMATION
  Report Type: Spontaneous
  Country: CN (occurrence: CN)
  Receive Date: 20241207
  Receipt Date: 20241207
  Transmission Date: 20250115
  Serious: Yes (Other)
  Sender: ACCORD
  Company Number: None

PATIENT
  Age: 69 Year
  Sex: Female
  Weight: 71 kg

DRUGS (4)
  1. TRASTUZUMAB [Suspect]
     Active Substance: TRASTUZUMAB
     Indication: Gastric cancer stage IV
     Dosage: 450 MILLIGRAM, QD, STRENGTH:  150 MILLIGRAM
     Route: 042
     Dates: start: 20241119, end: 20241119
  2. SINTILIMAB [Suspect]
     Active Substance: SINTILIMAB
     Indication: Gastric cancer stage IV
     Dosage: 200 MILLIGRAM, QD
     Route: 042
     Dates: start: 20241119, end: 20241119
  3. OXALIPLATIN [Suspect]
     Active Substance: OXALIPLATIN
     Indication: Gastric cancer stage IV
     Dosage: 200 MILLIGRAM, QD, IV DRIP
     Route: 042
     Dates: start: 20241120, end: 20241120
  4. CAPECITABINE [Suspect]
     Active Substance: CAPECITABINE
     Indication: Gastric cancer stage IV
     Dosage: 1.5 GRAM, BID, D1-D14, ORAL USE
     Route: 048
     Dates: start: 20241120

REACTIONS (1)
  - Myelosuppression [Unknown]

NARRATIVE: CASE EVENT DATE: 20241123
